FAERS Safety Report 5242587-5 (Version None)
Quarter: 2007Q1

REPORT INFORMATION
  Report Type: 
  Country: None (occurrence: None)
  Receive Date: 20070221
  Receipt Date: 20070215
  Transmission Date: 20070707
  Serious: Yes (Death, Other)
  Sender: FDA-Public Use
  Company Number: JP-AVENTIS-200710255JP

PATIENT
  Age: 88 Year
  Sex: Male

DRUGS (13)
  1. TARGOCID [Suspect]
     Route: 041
     Dates: start: 20070126, end: 20070126
  2. TARGOCID [Suspect]
     Route: 041
     Dates: start: 20070127, end: 20070201
  3. TARGOCID [Suspect]
     Route: 041
     Dates: start: 20070202, end: 20070204
  4. TARGOCID [Suspect]
     Route: 041
     Dates: start: 20070205, end: 20070205
  5. GLYBURIDE [Suspect]
     Dosage: ROUTE: GASTROSTOMY TUBE
     Route: 050
     Dates: start: 20061108, end: 20061114
  6. GLYBURIDE [Suspect]
     Dosage: ROUTE: GASTROSTOMY TUBE
     Route: 050
     Dates: start: 20041115, end: 20061121
  7. GLYBURIDE [Suspect]
     Dosage: ROUTE: GASTROSTOMY TUBE
     Route: 050
     Dates: start: 20061122, end: 20061124
  8. GLYBURIDE [Suspect]
     Dosage: ROUTE: GASTROSTOMY TUBE
     Route: 050
     Dates: start: 20061125, end: 20061128
  9. GLYBURIDE [Suspect]
     Dosage: ROUTE: GASTROSTOMY TUBE
     Route: 050
     Dates: start: 20061129, end: 20070129
  10. METFORMIN HCL [Suspect]
     Dosage: ROUTE: GASTROSTOMY TUBE
     Route: 050
     Dates: start: 20061121, end: 20070129
  11. MINOCYCLINE HCL [Concomitant]
     Route: 041
     Dates: start: 20070112, end: 20070115
  12. PASIL [Concomitant]
     Route: 041
     Dates: start: 20070120, end: 20070125
  13. PENTCILLIN [Concomitant]
     Route: 041
     Dates: start: 20070116, end: 20070119

REACTIONS (2)
  - HYPOGLYCAEMIA [None]
  - PNEUMONIA STAPHYLOCOCCAL [None]
